FAERS Safety Report 17869948 (Version 1)
Quarter: 2020Q2

REPORT INFORMATION
  Report Type: Spontaneous
  Country: US (occurrence: US)
  Receive Date: 20200608
  Receipt Date: 20200608
  Transmission Date: 20200714
  Serious: Yes (Other)
  Sender: FDA-Public Use
  Company Number: US-TAKEDA-2020TUS025197

PATIENT
  Sex: Female

DRUGS (2)
  1. TRINTELLIX [Suspect]
     Active Substance: VORTIOXETINE HYDROBROMIDE
     Indication: DEPRESSION
     Dosage: 10 MILLIGRAM, QD
     Route: 048
     Dates: start: 202004
  2. NEURONTIN [Suspect]
     Active Substance: GABAPENTIN
     Indication: TUMOUR PAIN
     Dosage: 3600 MILLIGRAM, QD
     Route: 065

REACTIONS (3)
  - Suicidal ideation [Unknown]
  - Weight increased [Unknown]
  - Memory impairment [Unknown]
